FAERS Safety Report 9849168 (Version 1)
Quarter: 2014Q1

REPORT INFORMATION
  Report Type: Report from Study
  Country: US (occurrence: US)
  Receive Date: 20140128
  Receipt Date: 20140128
  Transmission Date: 20141002
  Serious: No
  Sender: FDA-Public Use
  Company Number: US-ABBVIE-13P-163-1084903-00

PATIENT
  Age: 30 Year
  Sex: Female

DRUGS (1)
  1. LUPRON DEPOT [Suspect]
     Indication: ENDOMETRIOSIS
     Dates: start: 200804

REACTIONS (3)
  - Emotional disorder [Recovering/Resolving]
  - Menstruation irregular [Unknown]
  - Night sweats [Recovered/Resolved]
